FAERS Safety Report 11573474 (Version 2)
Quarter: 2015Q4

REPORT INFORMATION
  Report Type: Spontaneous
  Country: US (occurrence: US)
  Receive Date: 20150916
  Receipt Date: 20151027
  Transmission Date: 20160304
  Serious: No
  Sender: FDA-Public Use
  Company Number: US-ELI_LILLY_AND_COMPANY-US200911000516

PATIENT
  Age: 76 Year
  Sex: Female

DRUGS (5)
  1. FORTEO [Suspect]
     Active Substance: TERIPARATIDE
     Dosage: 20 UG, DAILY (1/D)
     Route: 065
     Dates: start: 2009, end: 2009
  2. SANCTURA [Concomitant]
     Active Substance: TROSPIUM CHLORIDE
     Indication: URINARY INCONTINENCE
     Dates: start: 200909
  3. FORTEO [Suspect]
     Active Substance: TERIPARATIDE
     Indication: OSTEOPOROSIS
     Dosage: 20 UG, DAILY (1/D)
     Route: 065
     Dates: start: 20090916, end: 2009
  4. FORTEO [Suspect]
     Active Substance: TERIPARATIDE
     Dosage: 20 UG, DAILY (1/D)
     Route: 065
     Dates: start: 2009
  5. FORTEO [Suspect]
     Active Substance: TERIPARATIDE
     Dosage: 20 UG, DAILY (1/D)
     Route: 065
     Dates: start: 2009, end: 2009

REACTIONS (10)
  - Stress [Unknown]
  - Pain [Recovering/Resolving]
  - Eye pain [Recovering/Resolving]
  - Contusion [Unknown]
  - Constipation [Not Recovered/Not Resolved]
  - Herpes zoster [Recovering/Resolving]
  - Hyperaesthesia [Not Recovered/Not Resolved]
  - Feeling abnormal [Recovering/Resolving]
  - Rash pruritic [Recovering/Resolving]
  - Headache [Recovering/Resolving]

NARRATIVE: CASE EVENT DATE: 2009
